FAERS Safety Report 7994457-7 (Version None)
Quarter: 2011Q4

REPORT INFORMATION
  Report Type: 
  Country: None (occurrence: None)
  Receive Date: 20111220
  Receipt Date: 20111208
  Transmission Date: 20120403
  Serious: Yes (Hospitalization, Other)
  Sender: FDA-Public Use
  Company Number: DE-AMGEN-DEUSP2011046206

PATIENT
  Age: 84 Year
  Sex: Female

DRUGS (5)
  1. ARCOXIA [Concomitant]
     Dosage: 60 MG, Q12H
  2. PROLIA [Suspect]
     Indication: OSTEOPOROSIS
     Dosage: 60 MG, Q6MO
     Route: 058
     Dates: start: 20101114
  3. RAMIPRIL [Concomitant]
     Dosage: 5 MG, UNK
  4. CALCILAC [Concomitant]
  5. FORTEO [Concomitant]
     Indication: OSTEOPOROSIS
     Dosage: UNK
     Dates: end: 20101114

REACTIONS (31)
  - SHOCK [None]
  - COGNITIVE DISORDER [None]
  - GAIT DISTURBANCE [None]
  - EXECUTIVE DYSFUNCTION [None]
  - HYPOPHAGIA [None]
  - POLYNEUROPATHY [None]
  - DISTURBANCE IN ATTENTION [None]
  - ABNORMAL BEHAVIOUR [None]
  - EATING DISORDER [None]
  - MOBILITY DECREASED [None]
  - WEIGHT DECREASED [None]
  - DECREASED APPETITE [None]
  - DYSSTASIA [None]
  - OEDEMA PERIPHERAL [None]
  - CENTRAL NERVOUS SYSTEM LESION [None]
  - SKIN DISCOLOURATION [None]
  - MUSCULOSKELETAL PAIN [None]
  - PAIN IN EXTREMITY [None]
  - THINKING ABNORMAL [None]
  - FEAR [None]
  - FEELING ABNORMAL [None]
  - SLEEP DISORDER [None]
  - GENERAL PHYSICAL HEALTH DETERIORATION [None]
  - AGITATED DEPRESSION [None]
  - CEREBRAL MICROANGIOPATHY [None]
  - MENTAL STATUS CHANGES [None]
  - LOGORRHOEA [None]
  - DEMENTIA [None]
  - ASTHENIA [None]
  - BALANCE DISORDER [None]
  - ERYTHEMA [None]
